FAERS Safety Report 14651602 (Version 2)
Quarter: 2018Q3

REPORT INFORMATION
  Report Type: Report from Study
  Country: None (occurrence: US)
  Receive Date: 20180317
  Receipt Date: 20180925
  Transmission Date: 20181010
  Serious: Yes (Hospitalization, Other)
  Sender: FDA-Public Use
  Company Number: US-ABBVIE-18S-163-2284267-00

PATIENT
  Sex: Male
  Weight: 90.8 kg

DRUGS (2)
  1. CREON [Suspect]
     Active Substance: PANCRELIPASE AMYLASE\PANCRELIPASE LIPASE\PANCRELIPASE PROTEASE
     Indication: PANCREATITIS
     Route: 048
     Dates: start: 2011
  2. CREON [Suspect]
     Active Substance: PANCRELIPASE AMYLASE\PANCRELIPASE LIPASE\PANCRELIPASE PROTEASE
     Dosage: 4?5 TIMES A DAY
     Route: 048

REACTIONS (13)
  - Limb injury [Not Recovered/Not Resolved]
  - Asthenia [Unknown]
  - Foot deformity [Not Recovered/Not Resolved]
  - Gallbladder disorder [Unknown]
  - Delirium [Unknown]
  - Iron deficiency anaemia [Unknown]
  - Serum ferritin decreased [Unknown]
  - Osteomyelitis [Recovered/Resolved]
  - Hospitalisation [Unknown]
  - Gallbladder hypofunction [Unknown]
  - Gait disturbance [Not Recovered/Not Resolved]
  - Impaired healing [Recovered/Resolved]
  - Osteomyelitis [Unknown]

NARRATIVE: CASE EVENT DATE: 2011
